FAERS Safety Report 19028419 (Version 1)
Quarter: 2021Q1

REPORT INFORMATION
  Report Type: Spontaneous
  Country: FR (occurrence: FR)
  Receive Date: 20210318
  Receipt Date: 20210318
  Transmission Date: 20210420
  Serious: Yes (Hospitalization)
  Sender: FDA-Public Use
  Company Number: FR-ALSI-2021000069

PATIENT
  Age: 18 Year
  Sex: Male

DRUGS (1)
  1. NITROUS OXIDE. [Suspect]
     Active Substance: NITROUS OXIDE
     Indication: DRUG DEPENDENCE
     Route: 055

REACTIONS (5)
  - Loss of consciousness [Recovered/Resolved]
  - Agitation [Recovered/Resolved]
  - Drug dependence [Unknown]
  - Confusional state [Recovered/Resolved]
  - Drug abuse [Unknown]
